FAERS Safety Report 14660360 (Version 1)
Quarter: 2018Q1

REPORT INFORMATION
  Report Type: Spontaneous
  Country: US (occurrence: US)
  Receive Date: 20180320
  Receipt Date: 20180320
  Transmission Date: 20180509
  Serious: No
  Sender: FDA-Public Use
  Company Number: US-009507513-1803USA007278

PATIENT
  Sex: Male

DRUGS (1)
  1. COZAAR [Suspect]
     Active Substance: LOSARTAN POTASSIUM
     Indication: HYPERTENSION
     Dosage: 25 MG, QD (ONE TIME DAILY)
     Route: 048
     Dates: start: 20180201

REACTIONS (2)
  - Tremor [Unknown]
  - Nervousness [Unknown]

NARRATIVE: CASE EVENT DATE: 2018
